FAERS Safety Report 23960872 (Version 1)
Quarter: 2024Q2

REPORT INFORMATION
  Report Type: Spontaneous
  Country: NL (occurrence: NL)
  Receive Date: 20240611
  Receipt Date: 20240611
  Transmission Date: 20240716
  Serious: Yes (Other)
  Sender: FDA-Public Use
  Company Number: None

PATIENT
  Age: 67 Year
  Sex: Male
  Weight: 79 kg

DRUGS (1)
  1. INFLIXIMAB [Suspect]
     Active Substance: INFLIXIMAB
     Indication: Cardiac sarcoidosis
     Dosage: 1 X PER 4 WEKEN
     Route: 065
     Dates: start: 20230405

REACTIONS (4)
  - Pseudostroke [Unknown]
  - Speech disorder [Unknown]
  - Cerebral disorder [Unknown]
  - Off label use [Unknown]
